FAERS Safety Report 9462805 (Version 2)
Quarter: 2013Q3

REPORT INFORMATION
  Report Type: Spontaneous
  Country: JP (occurrence: JP)
  Receive Date: 20130816
  Receipt Date: 20130823
  Transmission Date: 20140515
  Serious: Yes (Death, Other)
  Sender: FDA-Public Use
  Company Number: JP-ALEXION PHARMACEUTICALS INC.-A201301910

PATIENT
  Age: 75 Year
  Sex: Male

DRUGS (3)
  1. SOLIRIS 300MG [Suspect]
     Indication: PAROXYSMAL NOCTURNAL HAEMOGLOBINURIA
     Dosage: 900 MG, Q2W
     Route: 042
     Dates: end: 20130724
  2. PREDNISOLONE [Concomitant]
     Dosage: 6 MG, QD
     Dates: end: 20130731
  3. PRIMOBOLAN [Concomitant]
     Dosage: 10 MG, QD
     Dates: end: 20130731

REACTIONS (3)
  - Asthenia [Fatal]
  - General physical health deterioration [Unknown]
  - Renal impairment [Unknown]
